FAERS Safety Report 5905076-8 (Version None)
Quarter: 2008Q3

REPORT INFORMATION
  Report Type: 
  Country: None (occurrence: None)
  Receive Date: 20080909
  Receipt Date: 20071206
  Transmission Date: 20090109
  Serious: Yes (Hospitalization)
  Sender: FDA-Public Use
  Company Number: 163-20785-07110921

PATIENT
  Sex: Male

DRUGS (3)
  1. THALOMID [Suspect]
     Indication: MULTIPLE MYELOMA
     Dosage: 100 MG, QD, ORAL ; 200 MG, QD, ORAL ; 200 MG, QD, ORAL
     Route: 048
     Dates: start: 20050919
  2. THALOMID [Suspect]
     Indication: MULTIPLE MYELOMA
     Dosage: 100 MG, QD, ORAL ; 200 MG, QD, ORAL ; 200 MG, QD, ORAL
     Route: 048
     Dates: start: 20051115
  3. THALOMID [Suspect]
     Indication: MULTIPLE MYELOMA
     Dosage: 100 MG, QD, ORAL ; 200 MG, QD, ORAL ; 200 MG, QD, ORAL
     Route: 048
     Dates: start: 20071115

REACTIONS (1)
  - BLOOD COUNT ABNORMAL [None]
